FAERS Safety Report 19258144 (Version 1)
Quarter: 2021Q2

REPORT INFORMATION
  Report Type: Spontaneous
  Country: BG (occurrence: BG)
  Receive Date: 20210514
  Receipt Date: 20210514
  Transmission Date: 20210717
  Serious: Yes (Life-Threatening, Hospitalization, Other)
  Sender: FDA-Public Use
  Company Number: NVSC2021BG106091

PATIENT
  Age: 26 Year
  Sex: Female
  Weight: 40 kg

DRUGS (2)
  1. DEFERASIROX. [Suspect]
     Active Substance: DEFERASIROX
     Indication: THALASSAEMIA BETA
     Dosage: 21 MG/KG
     Route: 048
     Dates: start: 201901, end: 202101
  2. DEFERASIROX. [Suspect]
     Active Substance: DEFERASIROX
     Dosage: 21 MG/KG
     Route: 048
     Dates: end: 202103

REACTIONS (6)
  - Epilepsy [Unknown]
  - Disorientation [Unknown]
  - Hyperammonaemia [Recovered/Resolved]
  - Encephalitis viral [Unknown]
  - Coma [Recovered/Resolved]
  - Encephalopathy [Unknown]

NARRATIVE: CASE EVENT DATE: 202101
